FAERS Safety Report 10521691 (Version 2)
Quarter: 2014Q4

REPORT INFORMATION
  Report Type: Spontaneous
  Country: US (occurrence: US)
  Receive Date: 20141016
  Receipt Date: 20141127
  Transmission Date: 20150528
  Serious: No
  Sender: FDA-Public Use
  Company Number: US-009507513-1410USA007235

PATIENT
  Age: 38 Year
  Sex: Female
  Weight: 77.98 kg

DRUGS (5)
  1. DECADRON [Suspect]
     Active Substance: DEXAMETHASONE
     Indication: ANTIEMETIC SUPPORTIVE CARE
     Dosage: DAILY DOSE: 10 MG
     Route: 042
     Dates: start: 20141009
  2. EMEND [Suspect]
     Active Substance: APREPITANT
     Indication: VOMITING
  3. CISPLATIN. [Concomitant]
     Active Substance: CISPLATIN
     Indication: CHEMOTHERAPY
     Dosage: DAILY DOSE: 115 MG
     Route: 042
  4. EMEND [Suspect]
     Active Substance: APREPITANT
     Indication: BREAST CANCER
     Dosage: DAILY DOSE: 150 MG
     Route: 042
     Dates: start: 20141009
  5. ALOXI [Suspect]
     Active Substance: PALONOSETRON HYDROCHLORIDE
     Indication: ANTIEMETIC SUPPORTIVE CARE
     Dosage: DAILY DOSE: 0.25 MG
     Route: 042
     Dates: start: 20141009

REACTIONS (2)
  - Anxiety [Recovered/Resolved]
  - Nausea [Recovered/Resolved]

NARRATIVE: CASE EVENT DATE: 20141009
